FAERS Safety Report 24439163 (Version 1)
Quarter: 2024Q4

REPORT INFORMATION
  Report Type: Spontaneous
  Country: US (occurrence: None)
  Receive Date: 20241014
  Receipt Date: 20241014
  Transmission Date: 20250115
  Serious: Yes (Other)
  Sender: Public
  Company Number: None

PATIENT
  Age: 60 Year
  Sex: Male
  Weight: 132.75 kg

DRUGS (13)
  1. CLINPRO 5000 [Suspect]
     Active Substance: SODIUM FLUORIDE
     Indication: Dental caries
     Dosage: OTHER STRENGTH : PEA-SIZED DOLLOP;?OTHER QUANTITY : 1 TOOTHPASTE;?FREQUENCY : AT BEDTIME;?
     Route: 061
     Dates: start: 20241013, end: 20241014
  2. Amlodipene [Concomitant]
  3. LOSARTAN [Concomitant]
  4. LASIX [Concomitant]
     Active Substance: FUROSEMIDE
  5. METOPROLOL [Concomitant]
  6. MONTELUKAST [Concomitant]
  7. ZOCOR [Concomitant]
     Active Substance: SIMVASTATIN
  8. TRIAMCINOLONE [Concomitant]
  9. Aspirin [Concomitant]
  10. Multi-vitamin [Concomitant]
  11. One a day men 50+ [Concomitant]
  12. Claritin [Concomitant]
  13. ZYRTEC [Concomitant]
     Active Substance: CETIRIZINE HYDROCHLORIDE

REACTIONS (5)
  - Abdominal pain upper [None]
  - Nausea [None]
  - Diarrhoea [None]
  - Hyperhidrosis [None]
  - Chills [None]

NARRATIVE: CASE EVENT DATE: 20241014
